FAERS Safety Report 23661704 (Version 1)
Quarter: 2024Q1

REPORT INFORMATION
  Report Type: Spontaneous
  Country: US (occurrence: US)
  Receive Date: 20240322
  Receipt Date: 20240322
  Transmission Date: 20240410
  Serious: No
  Sender: FDA-Public Use
  Company Number: US-TEVA-VS-3144090

PATIENT

DRUGS (1)
  1. CIMETIDINE [Suspect]
     Active Substance: CIMETIDINE
     Indication: Product used for unknown indication
     Route: 065

REACTIONS (1)
  - Product prescribing error [Unknown]
